FAERS Safety Report 11607386 (Version 1)
Quarter: 2015Q3

REPORT INFORMATION
  Report Type: Spontaneous
  Country: US (occurrence: US)
  Receive Date: 20150916
  Receipt Date: 20150916
  Transmission Date: 20151125
  Serious: No
  Sender: FDA-Public Use
  Company Number: US-ELI_LILLY_AND_COMPANY-US201401003419

PATIENT
  Sex: Female

DRUGS (5)
  1. HUMALOG [Suspect]
     Active Substance: INSULIN LISPRO
     Dosage: 21 IU, TID
     Route: 065
  2. HUMALOG [Suspect]
     Active Substance: INSULIN LISPRO
     Dosage: 21 IU, TID
     Route: 065
  3. LANTUS [Concomitant]
     Active Substance: INSULIN GLARGINE
     Dosage: 60 IU, EACH EVENING
  4. LANTUS [Concomitant]
     Active Substance: INSULIN GLARGINE
     Dosage: 63 IU, EACH EVENING
  5. HUMALOG [Suspect]
     Active Substance: INSULIN LISPRO
     Indication: TYPE 2 DIABETES MELLITUS
     Dosage: 17 IU, TID
     Route: 065
     Dates: start: 201301

REACTIONS (4)
  - Blood glucose increased [Unknown]
  - Incorrect product storage [Unknown]
  - Incorrect product storage [Unknown]
  - Medication error [Unknown]

NARRATIVE: CASE EVENT DATE: 2013
